FAERS Safety Report 6680782-9 (Version None)
Quarter: 2010Q2

REPORT INFORMATION
  Report Type: 
  Country: None (occurrence: None)
  Receive Date: 20100412
  Receipt Date: 20100322
  Transmission Date: 20101027
  Serious: Yes (Hospitalization)
  Sender: FDA-Public Use
  Company Number: AU-SOLVAY-00310001836

PATIENT
  Sex: Female

DRUGS (2)
  1. FLUVOXAMINE MALEATE [Suspect]
     Indication: DRUG USE FOR UNKNOWN INDICATION
  2. RISPERDAL [Suspect]
     Indication: SCHIZOPHRENIA
     Dosage: 3.5 MILLIGRAM(S) ORAL
     Route: 048
     Dates: start: 20010515

REACTIONS (11)
  - ABNORMAL WEIGHT GAIN [None]
  - AMNESIA [None]
  - CONDITION AGGRAVATED [None]
  - CONFUSIONAL STATE [None]
  - DEPRESSION [None]
  - DISORIENTATION [None]
  - DYSKINESIA [None]
  - GALACTORRHOEA [None]
  - INAPPROPRIATE AFFECT [None]
  - PRURITUS [None]
  - SKIN DISORDER [None]
